FAERS Safety Report 7842104-7 (Version None)
Quarter: 2011Q4

REPORT INFORMATION
  Report Type: 
  Country: None (occurrence: None)
  Receive Date: 20111024
  Receipt Date: 20111024
  Transmission Date: 20120403
  Serious: No
  Sender: FDA-Public Use
  Company Number: None

PATIENT
  Sex: Female
  Weight: 63.5036 kg

DRUGS (1)
  1. SALKERA (FOAM) ACID 6% [Suspect]
     Indication: ECZEMA
     Dosage: SMALL AMOUNT EVERY OTHER DAY A WEEK ON + OFF

REACTIONS (3)
  - PAIN [None]
  - SKIN BURNING SENSATION [None]
  - ECONOMIC PROBLEM [None]
